FAERS Safety Report 6397013-X (Version None)
Quarter: 2009Q4

REPORT INFORMATION
  Report Type: 
  Country: None (occurrence: None)
  Receive Date: 20091012
  Receipt Date: 20090911
  Transmission Date: 20100525
  Serious: No
  Sender: FDA-Public Use
  Company Number: US-BAYER-200933471NA

PATIENT
  Age: 33 Year
  Sex: Female

DRUGS (2)
  1. MIRENA [Suspect]
     Indication: CONTRACEPTION
     Route: 015
     Dates: start: 20090701
  2. PAIN MEDICINES NOS [Concomitant]
     Indication: ABDOMINAL PAIN

REACTIONS (4)
  - ABDOMINAL PAIN [None]
  - MEDICAL DEVICE COMPLICATION [None]
  - POST PROCEDURAL HAEMORRHAGE [None]
  - SUPPRESSED LACTATION [None]
